FAERS Safety Report 7215108-5 (Version None)
Quarter: 2011Q1

REPORT INFORMATION
  Report Type: 
  Country: None (occurrence: None)
  Receive Date: 20110107
  Receipt Date: 20100914
  Transmission Date: 20110831
  Serious: No
  Sender: FDA-Public Use
  Company Number: A0877694A

PATIENT
  Age: 72 Year
  Sex: Female

DRUGS (1)
  1. LOVAZA [Suspect]
     Dosage: 1G TWICE PER DAY
     Route: 048
     Dates: start: 20100525, end: 20100820

REACTIONS (4)
  - BLOOD PRESSURE INCREASED [None]
  - RESPIRATORY TRACT INFECTION [None]
  - BACK PAIN [None]
  - NAUSEA [None]
